FAERS Safety Report 9649775 (Version 2)
Quarter: 2013Q4

REPORT INFORMATION
  Report Type: Spontaneous
  Country: US (occurrence: US)
  Receive Date: 20131028
  Receipt Date: 20131205
  Transmission Date: 20140711
  Serious: Yes (Hospitalization)
  Sender: FDA-Public Use
  Company Number: US-B.I. PHARMACEUTICALS,INC./RIDGEFIELD-2013-BI-33699BP

PATIENT
  Sex: Female
  Weight: 89.81 kg

DRUGS (9)
  1. PRADAXA [Suspect]
     Indication: ATRIAL FIBRILLATION
     Dosage: 300 MG
     Dates: start: 20110307, end: 20111130
  2. LANSOPRAZOLE [Concomitant]
     Dosage: 30 MG
     Route: 048
  3. LEXAPRO [Concomitant]
     Dosage: 10 MG
     Route: 048
  4. PRAVASTATIN [Concomitant]
     Dosage: 20 MG
     Route: 048
  5. BYSTOLIC [Concomitant]
     Indication: HYPERTENSION
     Dosage: 5 MG
     Route: 048
  6. PAXIL [Concomitant]
  7. CEFTIN [Concomitant]
     Dosage: 500 MG
  8. NEURONTIN [Concomitant]
     Dosage: 600 MG
  9. RONAXAN [Concomitant]

REACTIONS (4)
  - Lower gastrointestinal haemorrhage [Recovered/Resolved]
  - Large intestinal haemorrhage [Recovered/Resolved]
  - Anaemia [Unknown]
  - Toxicity to various agents [Unknown]
